FAERS Safety Report 9114635 (Version 1)
Quarter: 2013Q1

REPORT INFORMATION
  Report Type: Spontaneous
  Country: GB (occurrence: None)
  Receive Date: 20130129
  Receipt Date: 20130129
  Transmission Date: 20140127
  Serious: Yes (Disabling, Other)
  Sender: FDA-Public Use
  Company Number: AUR-APL-2013-00846

PATIENT
  Age: 54 Year
  Sex: Male
  Weight: 82.55 kg

DRUGS (4)
  1. SERTRALINE (SERTRALINE) (SERTRALINE) [Suspect]
     Indication: DEPRESSION
     Dosage: ONE DOSE OF 150 MG PER DAY.
     Route: 048
  2. DICLOFENAC (DICLOFENAC) [Concomitant]
  3. PREGABALIN (PREGABALIN) [Concomitant]
  4. TRAMADOL (TRAMADOL) [Concomitant]

REACTIONS (17)
  - Urine flow decreased [None]
  - Tunnel vision [None]
  - Tremor [None]
  - Fatigue [None]
  - Skin disorder [None]
  - Orgasm abnormal [None]
  - Lethargy [None]
  - Arthralgia [None]
  - Personality disorder [None]
  - Erectile dysfunction [None]
  - Dizziness [None]
  - Depression [None]
  - Confusional state [None]
  - Skin odour abnormal [None]
  - Hypertonic bladder [None]
  - Anger [None]
  - Suicidal ideation [None]
